FAERS Safety Report 23153203 (Version 6)
Quarter: 2025Q1

REPORT INFORMATION
  Report Type: Report from Study
  Country: US (occurrence: US)
  Receive Date: 20231107
  Receipt Date: 20250228
  Transmission Date: 20250409
  Serious: Yes (Hospitalization, Other)
  Sender: TAKEDA
  Company Number: US-TAKEDA-2023TUS105204

PATIENT
  Sex: Female

DRUGS (16)
  1. IXAZOMIB [Suspect]
     Active Substance: IXAZOMIB
     Indication: Plasma cell myeloma
     Dosage: 2.3 MILLIGRAM, 1/WEEK
     Dates: start: 202103
  2. IXAZOMIB [Suspect]
     Active Substance: IXAZOMIB
     Dosage: 2.3 MILLIGRAM, 1/WEEK
  3. IXAZOMIB [Suspect]
     Active Substance: IXAZOMIB
  4. IXAZOMIB [Suspect]
     Active Substance: IXAZOMIB
  5. REVLIMID [Concomitant]
     Active Substance: LENALIDOMIDE
  6. HERBALS [Concomitant]
     Active Substance: HERBALS
  7. Hydroxo B12 [Concomitant]
  8. ASPIRIN [Concomitant]
     Active Substance: ASPIRIN
  9. VITAMIN D3 [Concomitant]
     Active Substance: CHOLECALCIFEROL
  10. VITAMIN B COMPLEX [Concomitant]
     Active Substance: CYANOCOBALAMIN\DEXPANTHENOL\NIACINAMIDE\PYRIDOXINE HYDROCHLORIDE\RIBOFLAVIN 5^-PHOSPHATE SODIUM\THIA
  11. FISH OIL [Concomitant]
     Active Substance: FISH OIL
  12. ACYCLOVIR [Concomitant]
     Active Substance: ACYCLOVIR
  13. COENZYME Q10 [Concomitant]
     Active Substance: DIETARY SUPPLEMENT\UBIDECARENONE
  14. DEXAMETHASONE [Concomitant]
     Active Substance: DEXAMETHASONE
  15. GINGER [Concomitant]
     Active Substance: GINGER
  16. CHONDROITIN SULFATE (BOVINE)\GLUCOSAMINE HYDROCHLORIDE [Concomitant]
     Active Substance: CHONDROITIN SULFATE (BOVINE)\GLUCOSAMINE HYDROCHLORIDE

REACTIONS (7)
  - Pneumonia bacterial [Recovered/Resolved]
  - Illness [Unknown]
  - Erythema [Unknown]
  - Memory impairment [Recovering/Resolving]
  - Decreased immune responsiveness [Unknown]
  - Anxiety [Unknown]
  - Stress [Unknown]
